FAERS Safety Report 10243379 (Version 1)
Quarter: 2014Q2

REPORT INFORMATION
  Report Type: Report from Study
  Country: US (occurrence: US)
  Receive Date: 20140618
  Receipt Date: 20140618
  Transmission Date: 20141212
  Serious: Yes (Death, Other)
  Sender: FDA-Public Use
  Company Number: US-SA-2014SA075522

PATIENT
  Age: 65 Year
  Sex: Female

DRUGS (1)
  1. LANTUS [Suspect]
     Indication: DIABETES MELLITUS
     Dosage: QPM?DOSE:70-75 UNITS
     Route: 065
     Dates: start: 2009, end: 20120202

REACTIONS (3)
  - Clostridium difficile infection [Fatal]
  - Lung neoplasm malignant [Not Recovered/Not Resolved]
  - Blood glucose increased [Not Recovered/Not Resolved]
